FAERS Safety Report 6033049-6 (Version None)
Quarter: 2009Q1

REPORT INFORMATION
  Report Type: 
  Country: None (occurrence: None)
  Receive Date: 20090109
  Receipt Date: 20090106
  Transmission Date: 20090719
  Serious: Yes (Death, Other)
  Sender: FDA-Public Use
  Company Number: CA-ELI_LILLY_AND_COMPANY-CA200901001068

PATIENT
  Age: 53 Year
  Sex: Female

DRUGS (1)
  1. XIGRIS [Suspect]
     Route: 042
     Dates: start: 20090101, end: 20090101

REACTIONS (4)
  - ACTIVATED PARTIAL THROMBOPLASTIN TIME [None]
  - DEATH [None]
  - HAEMORRHAGE SUBCUTANEOUS [None]
  - INTERNATIONAL NORMALISED RATIO INCREASED [None]
